FAERS Safety Report 7380309-2 (Version None)
Quarter: 2011Q1

REPORT INFORMATION
  Report Type: 
  Country: None (occurrence: None)
  Receive Date: 20110324
  Receipt Date: 20110324
  Transmission Date: 20110831
  Serious: Yes (Hospitalization)
  Sender: FDA-Public Use
  Company Number: None

PATIENT
  Sex: Male
  Weight: 82.1011 kg

DRUGS (14)
  1. PROCHLORPERAZINE TAB [Concomitant]
  2. MAGIC MOUTHWASH [Concomitant]
  3. BENADRYL [Concomitant]
  4. OMEPRAZOLE [Concomitant]
  5. ALPRAZOLAM [Concomitant]
  6. MULTI-VATMINS FOR MEN [Concomitant]
  7. SUTENT [Suspect]
     Indication: OESOPHAGEAL CARCINOMA
     Dosage: 1 PIL DAILY PO
     Route: 048
     Dates: start: 20110208, end: 20110308
  8. VICODIN [Concomitant]
  9. SUTENT [Suspect]
     Indication: OESOPHAGEAL CARCINOMA
     Dosage: 1 PILL DAILY PO
     Route: 048
     Dates: start: 20110208, end: 20110308
  10. SUCRALFATE [Concomitant]
  11. IMODIUM [Concomitant]
  12. PREDNISONE [Concomitant]
  13. DOXEPIN [Concomitant]
  14. METOCLOPRAMIDE [Concomitant]

REACTIONS (2)
  - FATIGUE [None]
  - DEHYDRATION [None]
